FAERS Safety Report 4513254-8 (Version None)
Quarter: 2004Q4

REPORT INFORMATION
  Report Type: 
  Country: None (occurrence: None)
  Receive Date: 20041130
  Receipt Date: 20041118
  Transmission Date: 20050328
  Serious: Yes (Hospitalization)
  Sender: FDA-Public Use
  Company Number: US-ROCHE-386849

PATIENT
  Sex: Female

DRUGS (4)
  1. ACCUTANE [Suspect]
     Indication: ACNE
     Route: 048
  2. ACCUTANE [Suspect]
     Route: 048
  3. CIPRO [Interacting]
     Route: 042
  4. BIRTH CONTROL PILLS NOS [Concomitant]
     Indication: CONTRACEPTION
     Route: 048

REACTIONS (4)
  - DRUG INTERACTION [None]
  - ERYTHEMA [None]
  - FACE OEDEMA [None]
  - NEPHROLITHIASIS [None]
